FAERS Safety Report 11749919 (Version 3)
Quarter: 2016Q1

REPORT INFORMATION
  Report Type: Spontaneous
  Country: AU (occurrence: AU)
  Receive Date: 20151118
  Receipt Date: 20160204
  Transmission Date: 20160525
  Serious: Yes (Death, Life-Threatening, Hospitalization, Disabling, Other)
  Sender: FDA-Public Use
  Company Number: AU-009507513-1511AUS008944

PATIENT
  Age: 57 Year
  Sex: Male
  Weight: 70 kg

DRUGS (3)
  1. EVEROLIMUS [Concomitant]
     Active Substance: EVEROLIMUS
     Dosage: 0.5 MG, BID
  2. KEYTRUDA [Suspect]
     Active Substance: PEMBROLIZUMAB
     Indication: MALIGNANT MELANOMA STAGE IV
     Dosage: TOTAL DAILY DOSE: 140 MG
     Route: 042
  3. AZATHIOPRINE. [Concomitant]
     Active Substance: AZATHIOPRINE
     Dosage: 100 MG, QD

REACTIONS (3)
  - Malignant neoplasm progression [Fatal]
  - Kidney transplant rejection [Unknown]
  - No therapeutic response [Unknown]

NARRATIVE: CASE EVENT DATE: 20150914
